FAERS Safety Report 20789330 (Version 1)
Quarter: 2022Q2

REPORT INFORMATION
  Report Type: Spontaneous
  Country: US (occurrence: None)
  Receive Date: 20220504
  Receipt Date: 20220504
  Transmission Date: 20220720
  Serious: Yes (Other)
  Sender: FDA-Public Use
  Company Number: None

PATIENT
  Age: 43 Year
  Sex: Female
  Weight: 114.75 kg

DRUGS (6)
  1. NURTEC ODT [Suspect]
     Active Substance: RIMEGEPANT SULFATE
     Indication: Migraine
     Dosage: OTHER FREQUENCY : EVERY 48 HOURS AS;?
     Route: 060
     Dates: start: 20220114
  2. SYMBICORT [Concomitant]
     Active Substance: BUDESONIDE\FORMOTEROL FUMARATE DIHYDRATE
  3. ALBUTEROL [Concomitant]
     Active Substance: ALBUTEROL
  4. TYLENOL [Concomitant]
     Active Substance: ACETAMINOPHEN
  5. VITAMIN D [Concomitant]
     Active Substance: VITAMIN D NOS
  6. BIOTIN [Concomitant]
     Active Substance: BIOTIN

REACTIONS (9)
  - Nausea [None]
  - Flat affect [None]
  - Restlessness [None]
  - Anxiety [None]
  - Fatigue [None]
  - Irritability [None]
  - Aggression [None]
  - Depression [None]
  - Adverse drug reaction [None]

NARRATIVE: CASE EVENT DATE: 20220502
